FAERS Safety Report 7319674-0 (Version None)
Quarter: 2011Q1

REPORT INFORMATION
  Report Type: 
  Country: None (occurrence: None)
  Receive Date: 20110228
  Receipt Date: 20100806
  Transmission Date: 20110831
  Serious: No
  Sender: FDA-Public Use
  Company Number: A0870833A

PATIENT
  Age: 55 Year
  Sex: Female
  Weight: 70.9 kg

DRUGS (6)
  1. LEXAPRO [Concomitant]
     Dosage: 40MG PER DAY
     Dates: start: 20060101
  2. LAMICTAL [Suspect]
     Dosage: 300MG PER DAY
     Route: 048
     Dates: start: 20010101
  3. SEROQUEL [Concomitant]
     Dosage: 75MG AT NIGHT
     Dates: start: 20060101
  4. PLAVIX [Concomitant]
  5. LIPITOR [Concomitant]
  6. WELLBUTRIN XL [Suspect]
     Indication: BIPOLAR II DISORDER
     Dosage: 450MG PER DAY
     Route: 048
     Dates: start: 19931201

REACTIONS (2)
  - AMNESIA [None]
  - MEMORY IMPAIRMENT [None]
